FAERS Safety Report 16693638 (Version 1)
Quarter: 2019Q3

REPORT INFORMATION
  Report Type: Spontaneous
  Country: US (occurrence: US)
  Receive Date: 20190627
  Receipt Date: 20190627
  Transmission Date: 20191004
  Serious: Yes (Other)
  Sender: FDA-Public Use
  Company Number: None

PATIENT
  Age: 52 Year
  Sex: Female
  Weight: 98.16 kg

DRUGS (2)
  1. EZETIMIBE. [Suspect]
     Active Substance: EZETIMIBE
     Indication: TYPE V HYPERLIPIDAEMIA
  2. EZETIMIBE. [Suspect]
     Active Substance: EZETIMIBE
     Indication: ARTERIOSCLEROSIS CORONARY ARTERY
     Dates: start: 20180101, end: 20180201

REACTIONS (2)
  - Heart rate irregular [None]
  - Syncope [None]

NARRATIVE: CASE EVENT DATE: 20180101
